FAERS Safety Report 5532287-6 (Version None)
Quarter: 2007Q4

REPORT INFORMATION
  Report Type: 
  Country: None (occurrence: None)
  Receive Date: 20071203
  Receipt Date: 20071121
  Transmission Date: 20080405
  Serious: Yes (Death, Hospitalization)
  Sender: FDA-Public Use
  Company Number: US-ELI_LILLY_AND_COMPANY-US200711005130

PATIENT
  Sex: Female

DRUGS (2)
  1. FORTEO [Suspect]
     Indication: BONE DISORDER
     Dates: start: 20050101, end: 20071101
  2. OXYGEN [Concomitant]

REACTIONS (3)
  - CARDIAC DISORDER [None]
  - HYPERTENSION [None]
  - PNEUMONIA [None]
